FAERS Safety Report 9355918 (Version 1)
Quarter: 2013Q2

REPORT INFORMATION
  Report Type: Spontaneous
  Country: US (occurrence: US)
  Receive Date: 20130619
  Receipt Date: 20130619
  Transmission Date: 20140414
  Serious: Yes (Other)
  Sender: FDA-Public Use
  Company Number: US-ABBOTT-13P-163-1103001-00

PATIENT
  Sex: Female
  Weight: 46.76 kg

DRUGS (10)
  1. SYNTHROID [Suspect]
     Indication: THYROIDECTOMY
  2. ASPIRIN [Concomitant]
     Indication: PRODUCT USED FOR UNKNOWN INDICATION
  3. SINGULAIR [Concomitant]
     Indication: PRODUCT USED FOR UNKNOWN INDICATION
  4. PROAIR HFA [Concomitant]
     Indication: ASTHMA
  5. XANAX [Concomitant]
     Indication: PRODUCT USED FOR UNKNOWN INDICATION
  6. TYLENOL [Concomitant]
     Indication: PRODUCT USED FOR UNKNOWN INDICATION
  7. VERELAN [Concomitant]
     Indication: PRODUCT USED FOR UNKNOWN INDICATION
  8. UNKNOWN MEDICATION [Concomitant]
     Indication: CARDIAC DISORDER
  9. UNKNOWN MEDICATION [Concomitant]
     Indication: BLOOD PRESSURE ABNORMAL
  10. TRAVATAN [Concomitant]
     Indication: PRODUCT USED FOR UNKNOWN INDICATION

REACTIONS (4)
  - Fall [Unknown]
  - Fall [Unknown]
  - Unevaluable event [Unknown]
  - Drug ineffective [Unknown]
